FAERS Safety Report 17913304 (Version 1)
Quarter: 2020Q2

REPORT INFORMATION
  Report Type: Spontaneous
  Country: US (occurrence: US)
  Receive Date: 20200618
  Receipt Date: 20200618
  Transmission Date: 20200714
  Serious: No
  Sender: FDA-Public Use
  Company Number: US-BAUSCH-BL-2020-016698

PATIENT
  Age: 44 Year
  Sex: Female

DRUGS (2)
  1. LUMIFY [Suspect]
     Active Substance: BRIMONIDINE TARTRATE
     Dosage: STARTED SECOND BOTTLE APPROXIMATELY 2 WEEKS AGO SOMETIME IN MAY/2020
     Route: 047
     Dates: start: 202005, end: 20200607
  2. LUMIFY [Suspect]
     Active Substance: BRIMONIDINE TARTRATE
     Indication: OCULAR HYPERAEMIA
     Dosage: STARTED FIRST BOTTLE 1 DROP IN EACH EYE IN MAR/2020 OR APR/2020
     Route: 047
     Dates: start: 2020, end: 2020

REACTIONS (6)
  - Rash [Not Recovered/Not Resolved]
  - Product quality issue [Unknown]
  - Feeling abnormal [Not Recovered/Not Resolved]
  - Hypersensitivity [Not Recovered/Not Resolved]
  - Pruritus [Not Recovered/Not Resolved]
  - Drug ineffective [Unknown]

NARRATIVE: CASE EVENT DATE: 2020
